FAERS Safety Report 18144649 (Version 2)
Quarter: 2020Q3

REPORT INFORMATION
  Report Type: Report from Study
  Country: IT (occurrence: IT)
  Receive Date: 20200813
  Receipt Date: 20200814
  Transmission Date: 20201103
  Serious: Yes (Hospitalization)
  Sender: FDA-Public Use
  Company Number: IT-MYLANLABS-2020M1070621

PATIENT
  Age: 82 Year
  Sex: Female

DRUGS (15)
  1. TORVAST [Concomitant]
     Active Substance: ATORVASTATIN
     Dosage: 20 MILLIGRAM
     Route: 048
  2. RENVELA [Concomitant]
     Active Substance: SEVELAMER CARBONATE
     Dosage: 1.6 GRAM
     Route: 048
  3. PLAQUENIL                          /00072602/ [Concomitant]
     Active Substance: HYDROXYCHLOROQUINE DIPHOSPHATE
     Dosage: 200 MILLIGRAM
     Route: 048
  4. ARANESP [Concomitant]
     Active Substance: DARBEPOETIN ALFA
     Dosage: 1 DOSAGE FORM
     Route: 058
  5. INSULIN GLARGINE [Suspect]
     Active Substance: INSULIN GLARGINE
     Indication: TYPE 2 DIABETES MELLITUS
     Dosage: 6 KILO?INTERNATIONAL UNIT, QD
     Route: 058
     Dates: start: 20191101
  6. SEACOR [Concomitant]
     Active Substance: OMEGA-3 FATTY ACIDS
     Dosage: 1 DOSAGE FORM
     Route: 048
  7. LASIX [Concomitant]
     Active Substance: FUROSEMIDE
     Dosage: 25 MILLIGRAM
     Route: 048
  8. HUMALOG [Concomitant]
     Active Substance: INSULIN LISPRO
     Dosage: 3 UNIT
     Dates: start: 201911
  9. OMEPRAZOLO SANDOZ [Concomitant]
     Dosage: 40 MILLIGRAM
     Route: 048
  10. LANTUS [Concomitant]
     Active Substance: INSULIN GLARGINE
     Dosage: 8 UNITS BEFORE DINNER, 6 UNITS AFTER DINNER
     Dates: start: 201911
  11. ALLOPURINOLO [Concomitant]
     Active Substance: ALLOPURINOL
     Dosage: 1 DOSAGE FORM
     Route: 048
  12. INSULIN GLARGINE [Suspect]
     Active Substance: INSULIN GLARGINE
     Dosage: UNK
     Dates: start: 1989
  13. CARDIOASPIRIN [Concomitant]
     Active Substance: ASPIRIN
     Dosage: 100 MILLIGRAM
     Route: 048
  14. LEXOTAN [Concomitant]
     Active Substance: BROMAZEPAM
     Dosage: 1 DOSAGE FORM
     Route: 048
  15. DIDROGYL [Concomitant]
     Active Substance: CALCIFEDIOL
     Dosage: 10 GTT DROPS
     Route: 048

REACTIONS (5)
  - Asthenia [Recovering/Resolving]
  - Sopor [Recovering/Resolving]
  - Hypoglycaemia [Recovering/Resolving]
  - Hypokinesia [Recovering/Resolving]
  - Bradyphrenia [Recovering/Resolving]

NARRATIVE: CASE EVENT DATE: 20200615
